FAERS Safety Report 21091447 (Version 1)
Quarter: 2022Q3

REPORT INFORMATION
  Report Type: Spontaneous
  Country: None (occurrence: A1)
  Receive Date: 20220716
  Receipt Date: 20220716
  Transmission Date: 20221027
  Serious: Yes (Hospitalization, Other)
  Sender: FDA-Public Use
  Company Number: A1-Acella Pharmaceuticals, LLC-2130946

PATIENT
  Age: 44 Year
  Sex: Female

DRUGS (2)
  1. DOXYCYCLINE [Suspect]
     Active Substance: DOXYCYCLINE
     Indication: COVID-19
     Route: 065
  2. IVERMECTIN [Concomitant]
     Active Substance: IVERMECTIN
     Route: 065

REACTIONS (11)
  - Visual impairment [Unknown]
  - Eye pain [Unknown]
  - Lacrimation disorder [Unknown]
  - Vaginal haemorrhage [Unknown]
  - Vomiting [Unknown]
  - Conjunctival hyperaemia [Unknown]
  - Periorbital disorder [Unknown]
  - Blindness [Unknown]
  - Epistaxis [Unknown]
  - Acute sinusitis [Unknown]
  - Nasal abscess [Unknown]
